FAERS Safety Report 8847861 (Version 5)
Quarter: 2013Q4

REPORT INFORMATION
  Report Type: Spontaneous
  Country: US (occurrence: US)
  Receive Date: 20121018
  Receipt Date: 20131025
  Transmission Date: 20140711
  Serious: Yes (Life-Threatening, Hospitalization, Disabling, Other)
  Sender: FDA-Public Use
  Company Number: US-009507513-1210USA003956

PATIENT
  Sex: Female
  Weight: 59.86 kg

DRUGS (3)
  1. FOSAMAX [Suspect]
     Indication: OSTEOPOROSIS
     Dosage: 10 MG, UNK
     Route: 048
     Dates: start: 200001, end: 200202
  2. FOSAMAX [Suspect]
     Dosage: 70 MG, WEEKLY
     Route: 048
  3. SOMA COMPOUND (ASPIRIN (+) CARISOPRODOL) [Concomitant]
     Indication: CHEST PAIN

REACTIONS (22)
  - Femur fracture [Not Recovered/Not Resolved]
  - Intramedullary rod insertion [Not Recovered/Not Resolved]
  - Femur fracture [Not Recovered/Not Resolved]
  - Intramedullary rod insertion [Not Recovered/Not Resolved]
  - Abdominal hernia [Unknown]
  - Haematocrit decreased [Unknown]
  - Anaemia postoperative [Unknown]
  - Hypothyroidism [Unknown]
  - Chest pain [Unknown]
  - Nasal congestion [Unknown]
  - Laceration [Unknown]
  - Fatigue [Unknown]
  - Foreign body [Recovered/Resolved]
  - Excoriation [Unknown]
  - Oesophageal dilatation [Unknown]
  - Arthritis [Unknown]
  - Insomnia [Unknown]
  - Foot operation [Unknown]
  - Bunion [Unknown]
  - Osteoarthritis [Unknown]
  - Deep vein thrombosis postoperative [Unknown]
  - Pain in jaw [Unknown]
